FAERS Safety Report 6039087-1 (Version None)
Quarter: 2009Q1

REPORT INFORMATION
  Report Type: 
  Country: None (occurrence: None)
  Receive Date: 20090115
  Receipt Date: 20090106
  Transmission Date: 20090719
  Serious: Yes (Hospitalization)
  Sender: FDA-Public Use
  Company Number: PL-PFIZER INC-2009153837

PATIENT

DRUGS (11)
  1. BLINDED *PLACEBO [Suspect]
     Indication: PROSTATE CANCER
     Dosage: UNK
     Route: 048
     Dates: start: 20081205
  2. BLINDED SUNITINIB MALATE [Suspect]
     Indication: PROSTATE CANCER
     Dosage: UNK
     Route: 048
     Dates: start: 20081205
  3. PREDNISONE [Suspect]
     Indication: PROSTATE CANCER
     Dosage: UNK
     Route: 048
     Dates: start: 20081205
  4. ZOLEDRONIC ACID [Concomitant]
     Indication: METASTASES TO BONE
     Dosage: 4 MG, UNK
     Route: 042
     Dates: start: 20081128
  5. NADROPARIN [Concomitant]
     Indication: THROMBOSIS
     Dosage: 0.6 ML, UNK
     Route: 058
  6. DROTAVERINE [Concomitant]
     Indication: MUSCLE SPASMS
  7. OMEPRAZOLE [Concomitant]
     Indication: PROPHYLAXIS
  8. PHOSPHOLIPIDS [Concomitant]
     Indication: PROPHYLAXIS
  9. MORPHINE SULFATE [Concomitant]
     Indication: ANALGESIA
  10. AMOXICILLIN AND CLAVULANATE POTASSIUM [Concomitant]
     Indication: URINARY TRACT INFECTION
     Route: 048
     Dates: start: 20081222, end: 20081229
  11. COTRIM [Concomitant]
     Indication: URINARY TRACT INFECTION
     Dosage: UNK
     Route: 048
     Dates: start: 20081229, end: 20090102

REACTIONS (1)
  - URINARY TRACT INFECTION [None]
